FAERS Safety Report 6855005-8 (Version None)
Quarter: 2010Q3

REPORT INFORMATION
  Report Type: 
  Country: None (occurrence: None)
  Receive Date: 20100717
  Receipt Date: 20080329
  Transmission Date: 20110219
  Serious: No
  Sender: FDA-Public Use
  Company Number: US-PFIZER INC-2007102153

PATIENT
  Sex: Female
  Weight: 101 kg

DRUGS (3)
  1. CHANTIX [Suspect]
     Indication: SMOKING CESSATION THERAPY
     Route: 048
     Dates: start: 20071121, end: 20071124
  2. IBUPROFEN [Concomitant]
  3. MULTI-VITAMINS [Concomitant]

REACTIONS (4)
  - BREAST MASS [None]
  - DIARRHOEA [None]
  - DYSPNOEA [None]
  - TOBACCO USER [None]
